FAERS Safety Report 15941185 (Version 5)
Quarter: 2019Q3

REPORT INFORMATION
  Report Type: Report from Study
  Country: US (occurrence: US)
  Receive Date: 20190208
  Receipt Date: 20190708
  Transmission Date: 20191004
  Serious: Yes (Death, Hospitalization, Other)
  Sender: FDA-Public Use
  Company Number: US-ACTELION-A-NJ2019-185830

PATIENT
  Age: 75 Year
  Sex: Female

DRUGS (1)
  1. OPSUMIT [Suspect]
     Active Substance: MACITENTAN
     Indication: PULMONARY ARTERIAL HYPERTENSION
     Dosage: UNK
     Route: 048
     Dates: start: 20151224, end: 20190319

REACTIONS (23)
  - Alanine aminotransferase abnormal [Unknown]
  - Back pain [Unknown]
  - Bile duct obstruction [Not Recovered/Not Resolved]
  - Mental status changes [Recovered/Resolved]
  - Aspartate aminotransferase abnormal [Unknown]
  - Weight decreased [Unknown]
  - Vomiting [Unknown]
  - Chills [Unknown]
  - Therapy non-responder [Unknown]
  - Pancreatic carcinoma [Fatal]
  - Malignant biliary obstruction [Recovered/Resolved]
  - Jaundice [Recovered/Resolved]
  - Tremor [Unknown]
  - Nasal congestion [Recovered/Resolved]
  - Liver function test increased [Unknown]
  - Disorientation [Recovered/Resolved]
  - Decreased appetite [Not Recovered/Not Resolved]
  - Condition aggravated [Not Recovered/Not Resolved]
  - Gait disturbance [Unknown]
  - Device malfunction [Unknown]
  - Pulmonary hypertension [Not Recovered/Not Resolved]
  - Nausea [Unknown]
  - Blood bilirubin abnormal [Unknown]

NARRATIVE: CASE EVENT DATE: 2016
